FAERS Safety Report 18029926 (Version 2)
Quarter: 2020Q3

REPORT INFORMATION
  Report Type: Spontaneous
  Country: US (occurrence: US)
  Receive Date: 20200715
  Receipt Date: 20200805
  Transmission Date: 20201103
  Serious: No
  Sender: FDA-Public Use
  Company Number: US-PFIZER INC-2020243321

PATIENT
  Age: 18 Year
  Sex: Female

DRUGS (1)
  1. IBRANCE [Suspect]
     Active Substance: PALBOCICLIB
     Dosage: 125 MG, CYCLIC (125 MG Q DAY X21, 7 DAYS OFF, TAKE WITH FOOD)
     Route: 048

REACTIONS (2)
  - Ear infection [Unknown]
  - Blood count abnormal [Unknown]
